FAERS Safety Report 8726918 (Version 3)
Quarter: 2012Q4

REPORT INFORMATION
  Report Type: 
  Country: US (occurrence: US)
  Receive Date: 20120816
  Receipt Date: 20121031
  Transmission Date: 20130627
  Serious: No
  Sender: FDA-Public Use
  Company Number: US-ASTRAZENECA-2012SE42158

PATIENT
  Age: 53 Year
  Sex: Female
  Weight: 116.1 kg

DRUGS (17)
  1. SEROQUEL IR [Suspect]
     Indication: CONVULSION
     Route: 048
     Dates: start: 201205
  2. SEROQUEL IR [Suspect]
     Indication: SLEEP DISORDER
     Route: 048
     Dates: start: 201205
  3. SEROQUEL IR [Suspect]
     Indication: CONVULSION
     Route: 048
     Dates: start: 2012
  4. SEROQUEL IR [Suspect]
     Indication: SLEEP DISORDER
     Route: 048
     Dates: start: 2012
  5. SEROQUEL IR [Suspect]
     Indication: CONVULSION
     Route: 048
     Dates: start: 201207, end: 201208
  6. SEROQUEL IR [Suspect]
     Indication: SLEEP DISORDER
     Route: 048
     Dates: start: 201207, end: 201208
  7. SEROQUEL IR [Suspect]
     Indication: CONVULSION
     Route: 048
     Dates: start: 201208, end: 201209
  8. SEROQUEL IR [Suspect]
     Indication: SLEEP DISORDER
     Route: 048
     Dates: start: 201208, end: 201209
  9. SEROQUEL IR [Suspect]
     Indication: CONVULSION
     Route: 048
     Dates: start: 201209
  10. SEROQUEL IR [Suspect]
     Indication: SLEEP DISORDER
     Route: 048
     Dates: start: 201209
  11. MELOXICAM [Concomitant]
     Indication: PAIN
     Route: 048
     Dates: start: 2010
  12. HYDROCODONE ACETAMINOPHEN [Concomitant]
     Indication: PAIN
     Dosage: 7.5/750 mg
     Route: 048
     Dates: start: 2005
  13. LAMOTRIGINE [Concomitant]
     Indication: CONVULSION
     Route: 048
     Dates: start: 2012
  14. ROPINIROLE [Concomitant]
     Indication: RESTLESS LEGS SYNDROME
     Route: 048
     Dates: start: 2012
  15. CITALOPRAM [Concomitant]
     Indication: STRESS
     Route: 048
     Dates: start: 2011
  16. PHENYTOIN [Concomitant]
     Indication: STRESS
     Route: 048
     Dates: start: 2011
  17. ASPIRIN [Concomitant]
     Indication: CARDIAC DISORDER
     Route: 048
     Dates: start: 2011

REACTIONS (4)
  - Insomnia [Unknown]
  - Off label use [Unknown]
  - Drug dose omission [Unknown]
  - Drug ineffective for unapproved indication [Unknown]
